FAERS Safety Report 5780451-3 (Version None)
Quarter: 2008Q2

REPORT INFORMATION
  Report Type: 
  Country: None (occurrence: None)
  Receive Date: 20080620
  Receipt Date: 20080617
  Transmission Date: 20081010
  Serious: Yes (Other)
  Sender: FDA-Public Use
  Company Number: US-JNJFOC-20080602418

PATIENT
  Age: 92 Year
  Sex: Female

DRUGS (5)
  1. RISPERDAL [Suspect]
     Indication: DEMENTIA
     Route: 048
  2. ATIVAN [Concomitant]
     Indication: SLEEP DISORDER
     Route: 048
  3. NAMENDA [Concomitant]
     Indication: DEMENTIA ALZHEIMER'S TYPE
     Route: 048
  4. FOSAMAX [Concomitant]
     Indication: OSTEOPOROSIS
     Route: 048
  5. PRILOSEC [Concomitant]
     Indication: ULCER
     Route: 048

REACTIONS (3)
  - ANOREXIA [None]
  - EATING DISORDER [None]
  - INSOMNIA [None]
